FAERS Safety Report 7296692-2 (Version None)
Quarter: 2011Q1

REPORT INFORMATION
  Report Type: 
  Country: None (occurrence: None)
  Receive Date: 20110216
  Receipt Date: 20110215
  Transmission Date: 20110831
  Serious: Yes (Death)
  Sender: FDA-Public Use
  Company Number: PHHY2010US78273

PATIENT
  Age: 79 Year
  Sex: Female

DRUGS (1)
  1. EXFORGE [Suspect]
     Dosage: TABLET (320/10 MG)

REACTIONS (2)
  - POST PROCEDURAL INFECTION [None]
  - GALLBLADDER DISORDER [None]
